FAERS Safety Report 16484051 (Version 1)
Quarter: 2019Q3

REPORT INFORMATION
  Report Type: Spontaneous
  Country: US (occurrence: US)
  Receive Date: 20190625
  Receipt Date: 20190625
  Transmission Date: 20191004
  Serious: Yes (Hospitalization)
  Sender: FDA-Public Use
  Company Number: None

PATIENT
  Age: 63 Year
  Sex: Female

DRUGS (12)
  1. LANSOPRAZOLE CAP 30 MG DR [Concomitant]
  2. HUMIRA [Suspect]
     Active Substance: ADALIMUMAB
     Indication: RHEUMATOID ARTHRITIS
     Dosage: ?          OTHER FREQUENCY:EVERY 2 WEEKS;?
     Route: 058
     Dates: start: 20180619
  3. OXYCODONE TAB 5 MG [Concomitant]
  4. SULFASALAZIN TAB 500 MG [Concomitant]
  5. ARIPIPRAZOLE TAB 2 MG [Concomitant]
  6. IBUPROFEN TAB 800 MG [Concomitant]
  7. HYDROXYCHLOR TAB 200 MG [Concomitant]
  8. GABAPENTIN CAP 300 MG [Concomitant]
  9. DULOXETINE CAP 60 MG [Concomitant]
  10. BACLOFEN TAB 20 MG [Concomitant]
  11. CELECOXIB CAP 200 MG [Concomitant]
  12. FORTEO [Suspect]
     Active Substance: TERIPARATIDE
     Indication: PRODUCT USED FOR UNKNOWN INDICATION
     Route: 058
     Dates: start: 20190227

REACTIONS (2)
  - Therapy cessation [None]
  - Hospitalisation [None]
